FAERS Safety Report 22132706 (Version 1)
Quarter: 2023Q1

REPORT INFORMATION
  Report Type: Spontaneous
  Country: US (occurrence: US)
  Receive Date: 20230323
  Receipt Date: 20230323
  Transmission Date: 20230418
  Serious: Yes (Other)
  Sender: FDA-Public Use
  Company Number: US-BoehringerIngelheim-2023-BI-226861

PATIENT
  Age: 62 Year
  Sex: Female

DRUGS (1)
  1. SPIRIVA RESPIMAT [Suspect]
     Active Substance: TIOTROPIUM BROMIDE
     Indication: Chronic obstructive pulmonary disease
     Dosage: 2 PUFF DAILY,
     Route: 055
     Dates: start: 2003

REACTIONS (4)
  - Lung neoplasm malignant [Unknown]
  - Lung neoplasm malignant [Unknown]
  - Inappropriate schedule of product administration [Unknown]
  - Lung disorder [Unknown]

NARRATIVE: CASE EVENT DATE: 20110101
